APPROVED DRUG PRODUCT: ACYCLOVIR
Active Ingredient: ACYCLOVIR
Strength: 200MG/5ML
Dosage Form/Route: SUSPENSION;ORAL
Application: A077026 | Product #001
Applicant: HIKMA PHARMACEUTICALS USA INC
Approved: Jun 7, 2005 | RLD: No | RS: No | Type: DISCN